FAERS Safety Report 16713313 (Version 1)
Quarter: 2019Q3

REPORT INFORMATION
  Report Type: Spontaneous
  Country: DE (occurrence: DE)
  Receive Date: 20190818
  Receipt Date: 20190818
  Transmission Date: 20191004
  Serious: Yes (Hospitalization)
  Sender: FDA-Public Use
  Company Number: DE-DEXPHARM-20190630

PATIENT
  Age: 80 Year
  Sex: Female

DRUGS (7)
  1. ASPIRIN. [Suspect]
     Active Substance: ASPIRIN
  2. DONEPEZIL NON DEXCEL PRODUCT [Interacting]
     Active Substance: DONEPEZIL
  3. LEVETIRACETAM. [Interacting]
     Active Substance: LEVETIRACETAM
  4. VALSARTAN. [Concomitant]
     Active Substance: VALSARTAN
  5. AMLODIPINE [Concomitant]
     Active Substance: AMLODIPINE BESYLATE
  6. METFORMIN [Concomitant]
     Active Substance: METFORMIN HYDROCHLORIDE
  7. RISPERIDONE. [Interacting]
     Active Substance: RISPERIDONE

REACTIONS (5)
  - Pain [Unknown]
  - Movement disorder [Unknown]
  - Haematoma [Unknown]
  - Fall [Unknown]
  - Drug interaction [Unknown]
